FAERS Safety Report 13134574 (Version 1)
Quarter: 2017Q1

REPORT INFORMATION
  Report Type: Spontaneous
  Country: AU (occurrence: VN)
  Receive Date: 20170120
  Receipt Date: 20170120
  Transmission Date: 20170428
  Serious: Yes (Other)
  Sender: FDA-Public Use
  Company Number: AU-PFIZER INC-2017021883

PATIENT
  Sex: Male

DRUGS (1)
  1. CAVERJECT IMPULSE [Suspect]
     Active Substance: ALPROSTADIL
     Dosage: UNK

REACTIONS (1)
  - Penile haemorrhage [Recovered/Resolved]

NARRATIVE: CASE EVENT DATE: 20170116
